FAERS Safety Report 21396926 (Version 1)
Quarter: 2022Q3

REPORT INFORMATION
  Report Type: Spontaneous
  Country: JP (occurrence: JP)
  Receive Date: 20220930
  Receipt Date: 20220930
  Transmission Date: 20221027
  Serious: Yes (Other)
  Sender: FDA-Public Use
  Company Number: JP-TAKEDA-2022TJP067719

PATIENT

DRUGS (1)
  1. ZEJULA [Suspect]
     Active Substance: NIRAPARIB
     Indication: Malignant peritoneal neoplasm
     Dosage: UNK
     Route: 048
     Dates: start: 202202, end: 202208

REACTIONS (4)
  - Sjogren^s syndrome [Not Recovered/Not Resolved]
  - Condition aggravated [Not Recovered/Not Resolved]
  - Malignant peritoneal neoplasm [Unknown]
  - Disease progression [Unknown]

NARRATIVE: CASE EVENT DATE: 20220713
